FAERS Safety Report 15500152 (Version 3)
Quarter: 2018Q4

REPORT INFORMATION
  Report Type: Spontaneous
  Country: US (occurrence: US)
  Receive Date: 20181015
  Receipt Date: 20181231
  Transmission Date: 20190205
  Serious: Yes (Other)
  Sender: FDA-Public Use
  Company Number: US-BAYER-2018-190862

PATIENT
  Age: 38 Year
  Sex: Female

DRUGS (2)
  1. MIRENA [Suspect]
     Active Substance: LEVONORGESTREL
     Dosage: 20 MCG/24HR, CONT
     Route: 015
     Dates: start: 201408, end: 2018
  2. MIRENA [Suspect]
     Active Substance: LEVONORGESTREL

REACTIONS (19)
  - Genital haemorrhage [None]
  - Post procedural haemorrhage [None]
  - Procedural pain [None]
  - Post procedural discomfort [None]
  - Mood altered [Recovered/Resolved]
  - Amenorrhoea [Recovered/Resolved]
  - Procedural pain [None]
  - Crying [None]
  - Uterine pain [None]
  - Crying [None]
  - Embedded device [None]
  - Pain [None]
  - Complication of device removal [None]
  - Complication of device removal [None]
  - Irritability [Recovered/Resolved]
  - Acne [Recovered/Resolved]
  - Libido decreased [Recovered/Resolved]
  - Abdominal pain [None]
  - Discomfort [None]

NARRATIVE: CASE EVENT DATE: 2018
